APPROVED DRUG PRODUCT: TELDRIN
Active Ingredient: CHLORPHENIRAMINE MALEATE
Strength: 12MG
Dosage Form/Route: CAPSULE, EXTENDED RELEASE;ORAL
Application: N017369 | Product #002
Applicant: GLAXOSMITHKLINE
Approved: Approved Prior to Jan 1, 1982 | RLD: No | RS: No | Type: DISCN